FAERS Safety Report 13414698 (Version 3)
Quarter: 2017Q2

REPORT INFORMATION
  Report Type: Spontaneous
  Country: DE (occurrence: DE)
  Receive Date: 20170406
  Receipt Date: 20170515
  Transmission Date: 20170830
  Serious: Yes (Life-Threatening, Disabling)
  Sender: FDA-Public Use
  Company Number: DE-TEVA-754654GER

PATIENT
  Age: 75 Year
  Sex: Male
  Weight: 88 kg

DRUGS (3)
  1. HEPARIN-NATRIUM-25 000-RATIOPHARM [Suspect]
     Active Substance: HEPARIN SODIUM
     Dosage: AT 11.10AM; IN HLM (HEART LUNG MACHINE)
     Dates: start: 20170309
  2. HEPARIN-NATRIUM-25 000-RATIOPHARM [Suspect]
     Active Substance: HEPARIN SODIUM
     Dosage: AT 9.35AM; IN HLM (HEART LUNG MACHINE)
     Dates: start: 20170309
  3. HEPARIN-NATRIUM-25 000-RATIOPHARM [Suspect]
     Active Substance: HEPARIN SODIUM
     Dosage: AT 9.20AM
     Route: 042
     Dates: start: 20170309

REACTIONS (5)
  - Drug effect incomplete [Unknown]
  - Thrombosis in device [Unknown]
  - Seizure [Unknown]
  - Epilepsy [Unknown]
  - Cerebral infarction [Unknown]

NARRATIVE: CASE EVENT DATE: 20170309
